FAERS Safety Report 8018287-5 (Version None)
Quarter: 2012Q1

REPORT INFORMATION
  Report Type: 
  Country: None (occurrence: None)
  Receive Date: 20120103
  Receipt Date: 20111227
  Transmission Date: 20120608
  Serious: Yes (Other)
  Sender: FDA-Public Use
  Company Number: US-BAYER-2011-124497

PATIENT
  Age: 67 Year
  Sex: Female
  Weight: 86 kg

DRUGS (2)
  1. ALEVE (CAPLET) [Suspect]
     Dosage: 1 DF, QD
     Route: 048
  2. ALEVE (CAPLET) [Suspect]

REACTIONS (6)
  - EYE IRRITATION [None]
  - URTICARIA [None]
  - HYPERSENSITIVITY [None]
  - EYE DISORDER [None]
  - PARAESTHESIA [None]
  - PRURITUS [None]
